FAERS Safety Report 6784959-3 (Version None)
Quarter: 2010Q2

REPORT INFORMATION
  Report Type: 
  Country: None (occurrence: None)
  Receive Date: 20100622
  Receipt Date: 20100617
  Transmission Date: 20101027
  Serious: Yes (Other)
  Sender: FDA-Public Use
  Company Number: CHPA2010US10185

PATIENT
  Age: 61 Year
  Sex: Male
  Weight: 142 kg

DRUGS (1)
  1. PRIVATE LABEL (NCH) [Suspect]
     Indication: SMOKING CESSATION THERAPY
     Dosage: 21 MG, QD
     Route: 062
     Dates: start: 20100101, end: 20100101

REACTIONS (2)
  - BRONCHITIS [None]
  - DEMENTIA ALZHEIMER'S TYPE [None]
